FAERS Safety Report 21296455 (Version 1)
Quarter: 2022Q3

REPORT INFORMATION
  Report Type: Other
  Country: US (occurrence: None)
  Receive Date: 20220906
  Receipt Date: 20220906
  Transmission Date: 20221026
  Serious: Yes (Hospitalization, Other)
  Sender: FDA-Public Use
  Company Number: US-ROCHE-3169451

PATIENT
  Sex: Male

DRUGS (15)
  1. OCREVUS [Suspect]
     Active Substance: OCRELIZUMAB
     Indication: Multiple sclerosis
     Route: 065
     Dates: start: 20210922
  2. OXYBUTYNIN [Concomitant]
     Active Substance: OXYBUTYNIN
     Dosage: SUBSEQUENT DOSES ON: 20/SEP/2021, 20/DEC/2021, 19/JAN/2022
     Route: 048
     Dates: start: 20210630
  3. CEPHALEXIN [Concomitant]
     Active Substance: CEPHALEXIN
     Dosage: SUBSEQUENT DOSES ON: 20/SEP/2021, 20/DEC/2021
     Route: 048
     Dates: start: 20210630
  4. CEPHALEXIN [Concomitant]
     Active Substance: CEPHALEXIN
     Route: 048
     Dates: start: 20220119
  5. SILDENAFIL [Concomitant]
     Active Substance: SILDENAFIL
     Dosage: SUBSEQUENT DOSES ON: 20/SEP/2021, 20/DEC/2021, 19/JAN/2022
     Route: 048
     Dates: start: 20210630
  6. ARMODAFINIL [Concomitant]
     Active Substance: ARMODAFINIL
     Dosage: SUBSEQUENT DOSES ON: 20/SEP/2021, 20/DEC/2021
     Route: 048
     Dates: start: 20210630
  7. LISINOPRIL [Concomitant]
     Active Substance: LISINOPRIL
     Dosage: SUBSEQUENT DOSES ON: 20/SEP/2021
     Route: 048
     Dates: start: 20210630
  8. LISINOPRIL [Concomitant]
     Active Substance: LISINOPRIL
     Dosage: SUBSEQUENT DOSES ON:19/JAN/2022
     Route: 048
     Dates: start: 20210920
  9. ESCITALOPRAM [Concomitant]
     Active Substance: ESCITALOPRAM OXALATE
     Dosage: SUBSEQUENT DOSES ON: 20/SEP/2021
     Route: 048
     Dates: start: 20210630
  10. ROSUVASTATIN [Concomitant]
     Active Substance: ROSUVASTATIN
     Dosage: SUBSEQUENT DOSES ON: 20/SEP/2021, 20/DEC/2021, 19/JAN/2022
     Route: 048
     Dates: start: 20210630
  11. VITAMIN C [Concomitant]
     Active Substance: ASCORBIC ACID
     Dosage: SUBSEQUENT DOSES ON: 20/SEP/2021, 20/DEC/2021, 19/JAN/2022
     Route: 048
     Dates: start: 20210630
  12. MELATONIN [Concomitant]
     Active Substance: MELATONIN
     Route: 048
     Dates: start: 20210630
  13. MELATONIN [Concomitant]
     Active Substance: MELATONIN
     Dosage: SUBSEQUENT DOSES ON: 20/DEC/2021, 19/JAN/2022
     Route: 048
     Dates: start: 20210920
  14. VITAMIN D3 [Concomitant]
     Active Substance: CHOLECALCIFEROL
     Dosage: SUBSEQUENT DOSES ON: 20/SEP/2021, 20/DEC/2021, 19/JAN/2022
     Route: 048
     Dates: start: 20210630
  15. CANNABIS SATIVA SUBSP. INDICA TOP [Concomitant]
     Active Substance: CANNABIS SATIVA SUBSP. INDICA TOP
     Dosage: SUBSEQUENT DOSES ON: 20/SEP/2021, 20/DEC/2021, 19/JAN/2022
     Dates: start: 20210630

REACTIONS (11)
  - Mean cell haemoglobin increased [Unknown]
  - Mean cell haemoglobin concentration increased [Unknown]
  - Monocyte count increased [Unknown]
  - Blood glucose increased [Unknown]
  - Blood creatinine decreased [Unknown]
  - High density lipoprotein decreased [Unknown]
  - Hypertension [Unknown]
  - Chronic obstructive pulmonary disease [Unknown]
  - Urinary tract infection [Unknown]
  - Ligament rupture [Unknown]
  - Glycosylated haemoglobin increased [Unknown]
